FAERS Safety Report 6259037-2 (Version None)
Quarter: 2009Q3

REPORT INFORMATION
  Report Type: 
  Country: None (occurrence: None)
  Receive Date: 20090707
  Receipt Date: 20090629
  Transmission Date: 20100115
  Serious: Yes (Other)
  Sender: FDA-Public Use
  Company Number: PHHY2009DE07810

PATIENT
  Sex: Female
  Weight: 53.9 kg

DRUGS (2)
  1. MYFORTIC [Suspect]
     Indication: TRANSPLANT REJECTION
     Dosage: 720 MG, BID
     Route: 048
     Dates: start: 20080901, end: 20081201
  2. PROGRAF [Concomitant]
     Indication: LIVER TRANSPLANT
     Dosage: 3.5 MG, BID

REACTIONS (2)
  - LIVER INJURY [None]
  - TRANSAMINASES INCREASED [None]
